FAERS Safety Report 5039301-5 (Version None)
Quarter: 2006Q2

REPORT INFORMATION
  Report Type: 
  Country: None (occurrence: None)
  Receive Date: 20060629
  Receipt Date: 20060620
  Transmission Date: 20061013
  Serious: No
  Sender: FDA-Public Use
  Company Number: US-JNJFOC-20060506504

PATIENT
  Sex: Female

DRUGS (1)
  1. RISPERDAL [Suspect]
     Indication: BIPOLAR DISORDER
     Route: 048

REACTIONS (1)
  - NO ADVERSE DRUG EFFECT [None]
